FAERS Safety Report 7782156-6 (Version None)
Quarter: 2011Q3

REPORT INFORMATION
  Report Type: 
  Country: None (occurrence: None)
  Receive Date: 20110927
  Receipt Date: 20110907
  Transmission Date: 20111222
  Serious: Yes (Other)
  Sender: FDA-Public Use
  Company Number: JP-BAYER-2011-082810

PATIENT
  Age: 79 Year
  Sex: Female

DRUGS (3)
  1. ASPIRIN [Suspect]
     Indication: CHEST PAIN
     Dosage: DAILY DOSE 100 MG
     Route: 048
     Dates: start: 20040101
  2. ASPIRIN [Suspect]
     Dosage: DAILY DOSE 200 MG
     Route: 048
     Dates: start: 20110401
  3. ASPIRIN [Suspect]
     Dosage: DAILY DOSE 100 MG
     Route: 048
     Dates: start: 20110418

REACTIONS (1)
  - HAEMATURIA [None]
